FAERS Safety Report 16056101 (Version 1)
Quarter: 2019Q2

REPORT INFORMATION
  Report Type: Spontaneous
  Country: US (occurrence: US)
  Receive Date: 20190308
  Receipt Date: 20190308
  Transmission Date: 20190711
  Serious: Yes (Hospitalization)
  Sender: FDA-Public Use
  Company Number: None

PATIENT
  Age: 74 Year
  Sex: Female

DRUGS (6)
  1. CYCLOSPORINE. [Suspect]
     Active Substance: CYCLOSPORINE
     Indication: PRODUCT USED FOR UNKNOWN INDICATION
     Dosage: ?          OTHER FREQUENCY:UNK;?
     Route: 066
  2. MYCOPHENOLATE [Concomitant]
     Active Substance: MYCOPHENOLIC ACID
  3. GABAPENTIN. [Concomitant]
     Active Substance: GABAPENTIN
  4. ROSUVASTATIN. [Concomitant]
     Active Substance: ROSUVASTATIN
  5. DULOXETINE. [Concomitant]
     Active Substance: DULOXETINE
  6. CELECOXIB. [Concomitant]
     Active Substance: CELECOXIB

REACTIONS (1)
  - Liver transplant rejection [None]

NARRATIVE: CASE EVENT DATE: 20190220
